FAERS Safety Report 4348487-7 (Version None)
Quarter: 2004Q2

REPORT INFORMATION
  Report Type: 
  Country: None (occurrence: None)
  Receive Date: 20040422
  Receipt Date: 20040414
  Transmission Date: 20050107
  Serious: Yes (Other)
  Sender: FDA-Public Use
  Company Number: 2004-03-2286

PATIENT
  Age: 9 Year
  Sex: Male

DRUGS (4)
  1. AERIUS (DESLORATADINE) TABLETS [Suspect]
     Indication: RHINITIS ALLERGIC
     Dosage: SEE IMAGE
     Route: 048
     Dates: start: 20031201, end: 20040207
  2. MOMETASONE [Concomitant]
  3. SALMETEROL [Concomitant]
  4. FLUTICASONE PROPIONATE [Concomitant]

REACTIONS (4)
  - ABNORMAL BEHAVIOUR [None]
  - AFFECT LABILITY [None]
  - ANXIETY [None]
  - SUICIDAL IDEATION [None]
